FAERS Safety Report 6879258-5 (Version None)
Quarter: 2010Q3

REPORT INFORMATION
  Report Type: 
  Country: None (occurrence: None)
  Receive Date: 20100728
  Receipt Date: 20100719
  Transmission Date: 20110219
  Serious: No
  Sender: FDA-Public Use
  Company Number: US-ASTRAZENECA-2008UW03276

PATIENT
  Age: 71 Year
  Sex: Female
  Weight: 64.4 kg

DRUGS (6)
  1. SEROQUEL [Suspect]
     Indication: SLEEP DISORDER
     Route: 048
     Dates: start: 20070101
  2. SEROQUEL [Suspect]
     Route: 048
  3. LUNESTA [Suspect]
     Dates: start: 20070101
  4. LUNESTA [Suspect]
  5. ATENOLOL [Concomitant]
  6. ENALAPRIL MALEATE [Concomitant]
     Indication: BLOOD PRESSURE

REACTIONS (7)
  - FALL [None]
  - FATIGUE [None]
  - INSOMNIA [None]
  - PLATELET COUNT INCREASED [None]
  - SOMNOLENCE [None]
  - WEIGHT INCREASED [None]
  - WRONG TECHNIQUE IN DRUG USAGE PROCESS [None]
